FAERS Safety Report 25702482 (Version 1)
Quarter: 2025Q3

REPORT INFORMATION
  Report Type: Report from Study
  Country: US (occurrence: US)
  Receive Date: 20250819
  Receipt Date: 20250819
  Transmission Date: 20251021
  Serious: Yes (Other)
  Sender: UCB
  Company Number: US-UCBSA-2025051218

PATIENT
  Age: 25 Year
  Sex: Female

DRUGS (7)
  1. BRIVARACETAM [Suspect]
     Active Substance: BRIVARACETAM
     Indication: Product used for unknown indication
  2. BRIVARACETAM [Suspect]
     Active Substance: BRIVARACETAM
  3. BRIVARACETAM [Suspect]
     Active Substance: BRIVARACETAM
  4. BRIVARACETAM [Suspect]
     Active Substance: BRIVARACETAM
  5. BRIVARACETAM [Suspect]
     Active Substance: BRIVARACETAM
     Dates: start: 2025
  6. CANNABIDIOL [Concomitant]
     Active Substance: CANNABIDIOL
     Indication: Product used for unknown indication
  7. CANNABIDIOL [Concomitant]
     Active Substance: CANNABIDIOL

REACTIONS (13)
  - Generalised tonic-clonic seizure [Unknown]
  - Myoclonic epilepsy [Unknown]
  - Feeling abnormal [Unknown]
  - Depressed mood [Unknown]
  - Anxiety [Unknown]
  - Fatigue [Unknown]
  - Panic attack [Unknown]
  - Memory impairment [Unknown]
  - Asthenia [Unknown]
  - Drug level increased [Unknown]
  - Loss of personal independence in daily activities [Unknown]
  - Therapeutic product effect variable [Unknown]
  - Therapeutic response decreased [Unknown]
